FAERS Safety Report 20021056 (Version 2)
Quarter: 2022Q3

REPORT INFORMATION
  Report Type: Report from Study
  Country: US (occurrence: US)
  Receive Date: 20211101
  Receipt Date: 20220804
  Transmission Date: 20221026
  Serious: No
  Sender: FDA-Public Use
  Company Number: US-NOVARTISTESTPH-NVSC2021US249176

PATIENT
  Sex: Female

DRUGS (2)
  1. ILARIS [Suspect]
     Active Substance: CANAKINUMAB
     Indication: Still^s disease
     Dosage: 80 MG, Q4W
     Route: 058
     Dates: start: 20150318
  2. ILARIS [Suspect]
     Active Substance: CANAKINUMAB
     Dosage: 80 MG, EVERY 7 WEEKS
     Route: 058
     Dates: start: 20191011, end: 20220802

REACTIONS (1)
  - Ligament sprain [Unknown]
